FAERS Safety Report 9531934 (Version 1)
Quarter: 2013Q3

REPORT INFORMATION
  Report Type: Spontaneous
  Country: US (occurrence: None)
  Receive Date: 20130917
  Receipt Date: 20130917
  Transmission Date: 20140515
  Serious: Yes (Life-Threatening, Hospitalization)
  Sender: FDA-Public Use
  Company Number: None

PATIENT
  Age: 76 Year
  Sex: Male
  Weight: 76 kg

DRUGS (5)
  1. DIPHENHYDRAMINE [Suspect]
     Indication: SLEEP DISORDER
     Route: 042
     Dates: start: 20110513, end: 20110517
  2. ASPIRIN [Concomitant]
  3. AMLODIPINE [Concomitant]
  4. LANSOPRAZOLE [Concomitant]
  5. METOPROLOL [Concomitant]

REACTIONS (3)
  - Ventricular tachycardia [None]
  - Confusional state [None]
  - Fall [None]
